FAERS Safety Report 7945682-2 (Version None)
Quarter: 2011Q4

REPORT INFORMATION
  Report Type: 
  Country: None (occurrence: None)
  Receive Date: 20111125
  Receipt Date: 20111115
  Transmission Date: 20120403
  Serious: Yes (Hospitalization)
  Sender: FDA-Public Use
  Company Number: AUR-APL-2011-05897

PATIENT
  Age: 60 Year
  Sex: Female
  Weight: 74 kg

DRUGS (7)
  1. IRINOTECAN HCL [Suspect]
     Indication: COLORECTAL CANCER METASTATIC
     Dosage: (335 MG),INTRAVENOUS
     Route: 042
     Dates: start: 20111010
  2. RAMIPRIL [Suspect]
     Indication: PRODUCT USED FOR UNKNOWN INDICATION
     Dosage: (5 MG),ORAL
     Route: 048
  3. BEVACIZUMAB(BEVACIZUMAB) [Suspect]
     Indication: COLORECTAL CANCER METASTATIC
     Dosage: (400 MG),INTRAVENOUS
     Route: 042
     Dates: start: 20111010
  4. BISOPROLOL FUMARATE [Suspect]
     Indication: PRODUCT USED FOR UNKNOWN INDICATION
     Dosage: (5 MG),ORAL
     Route: 048
  5. LEUCOVORIN CALCIUM [Suspect]
     Indication: COLORECTAL CANCER METASTATIC
     Dosage: INTRAVENOUS
     Route: 042
     Dates: start: 20111010
  6. FLUOROURACIL [Suspect]
     Indication: COLORECTAL CANCER METASTATIC
     Dosage: (750 MG),INTRAVENOUS, (4490 MG),INTRAVENOUS
     Route: 042
     Dates: start: 20111010, end: 20111024
  7. FLUOROURACIL [Suspect]
     Indication: COLORECTAL CANCER METASTATIC
     Dosage: (750 MG),INTRAVENOUS, (4490 MG),INTRAVENOUS
     Route: 042
     Dates: start: 20111010

REACTIONS (4)
  - DEHYDRATION [None]
  - NAUSEA [None]
  - FACIAL BONES FRACTURE [None]
  - GENERAL PHYSICAL HEALTH DETERIORATION [None]
